FAERS Safety Report 6293864-0 (Version None)
Quarter: 2009Q3

REPORT INFORMATION
  Report Type: 
  Country: None (occurrence: None)
  Receive Date: 20090803
  Receipt Date: 20090730
  Transmission Date: 20100115
  Serious: No
  Sender: FDA-Public Use
  Company Number: US-B.I. PHARMACEUTICALS,INC./RIDGEFIELD-2009-BP-08529BP

PATIENT
  Sex: Female

DRUGS (14)
  1. MIRAPEX [Suspect]
     Indication: RESTLESS LEGS SYNDROME
  2. MIRAPEX [Suspect]
     Indication: ARTHRALGIA
  3. PROPO-N/APAP [Concomitant]
     Indication: RESTLESS LEGS SYNDROME
  4. METFORMIN [Concomitant]
     Dosage: 2000 MG
  5. CARVEDILOL [Concomitant]
     Dosage: 250 MG
  6. FUROSEMIDE [Concomitant]
     Dosage: 80 MG
  7. LYRICA [Concomitant]
     Dosage: 75 MG
  8. KLOR-CON [Concomitant]
     Dosage: 30 MG
  9. ASPIRIN [Concomitant]
     Dosage: 325 MG
  10. ISOSORBIDE MN-ER [Concomitant]
     Dosage: 30 MG
  11. CEPHALEXIN [Concomitant]
     Dosage: 250 MG
  12. VYTORIN [Concomitant]
  13. NITROFURAN [Concomitant]
     Dosage: 100 MG
  14. MIRAPEX [Concomitant]
     Dosage: 0.25 MG

REACTIONS (1)
  - RESTLESS LEGS SYNDROME [None]
